FAERS Safety Report 15994300 (Version 1)
Quarter: 2019Q1

REPORT INFORMATION
  Report Type: Spontaneous
  Country: DE (occurrence: DE)
  Receive Date: 20190222
  Receipt Date: 20190222
  Transmission Date: 20190418
  Serious: Yes (Other)
  Sender: FDA-Public Use
  Company Number: DE-ACCORD-108586

PATIENT
  Age: 48 Year
  Sex: Female
  Weight: 57.3 kg

DRUGS (1)
  1. ROSUVASTATIN. [Suspect]
     Active Substance: ROSUVASTATIN
     Indication: HYPERCHOLESTEROLAEMIA
     Dosage: 0-0-1
     Route: 048
     Dates: start: 20180523, end: 20180529

REACTIONS (3)
  - Circulatory collapse [Recovered/Resolved]
  - Night sweats [Recovered/Resolved]
  - Eyelid oedema [Recovered/Resolved]

NARRATIVE: CASE EVENT DATE: 20180523
